FAERS Safety Report 4815759-9 (Version None)
Quarter: 2005Q4

REPORT INFORMATION
  Report Type: 
  Country: None (occurrence: None)
  Receive Date: 20051031
  Receipt Date: 20050909
  Transmission Date: 20060501
  Serious: Yes (Hospitalization)
  Sender: FDA-Public Use
  Company Number: US-BRISTOL-MYERS SQUIBB COMPANY-13105176

PATIENT
  Sex: Female

DRUGS (7)
  1. ABILIFY [Suspect]
     Indication: BIPOLAR DISORDER
     Route: 048
     Dates: start: 20050803, end: 20050816
  2. ABILIFY [Suspect]
     Route: 048
     Dates: start: 20050815, end: 20050816
  3. CLONAZEPAM [Concomitant]
     Route: 048
  4. LITHIUM [Concomitant]
     Route: 048
     Dates: start: 20050808, end: 20050816
  5. LITHIUM [Concomitant]
     Route: 048
     Dates: start: 20050815, end: 20050816
  6. CIPROFLOXACIN [Concomitant]
     Route: 048
  7. CITALOPRAM [Concomitant]
     Route: 048

REACTIONS (3)
  - CATATONIA [None]
  - INCONTINENCE [None]
  - NEUROLEPTIC MALIGNANT SYNDROME [None]
